FAERS Safety Report 4662409-0 (Version None)
Quarter: 2005Q2

REPORT INFORMATION
  Report Type: 
  Country: None (occurrence: None)
  Receive Date: 20050516
  Receipt Date: 20050203
  Transmission Date: 20051028
  Serious: Yes (Hospitalization, Other)
  Sender: FDA-Public Use
  Company Number: US-MERCK-0502USA00533

PATIENT
  Age: 44 Year
  Sex: Female
  Weight: 59 kg

DRUGS (5)
  1. VIOXX [Suspect]
     Indication: OSTEOARTHRITIS
     Route: 048
     Dates: start: 20040101, end: 20040301
  2. ASACOL [Concomitant]
     Route: 065
  3. BENTYL [Concomitant]
     Route: 065
  4. PREDNISONE [Concomitant]
     Route: 065
  5. CORTICOSTEROIDS (UNSPECIFIED) [Concomitant]
     Indication: COLITIS ULCERATIVE
     Route: 065

REACTIONS (9)
  - ABDOMINAL PAIN [None]
  - CORONARY ARTERY DISEASE [None]
  - DIARRHOEA HAEMORRHAGIC [None]
  - GASTROOESOPHAGEAL REFLUX DISEASE [None]
  - HEART RATE IRREGULAR [None]
  - HYPERTENSION [None]
  - MYOCARDIAL INFARCTION [None]
  - PERICARDITIS [None]
  - PNEUMONIA [None]
